FAERS Safety Report 4722089-2 (Version None)
Quarter: 2005Q3

REPORT INFORMATION
  Report Type: 
  Country: None (occurrence: None)
  Receive Date: 20050722
  Receipt Date: 20050713
  Transmission Date: 20060218
  Serious: Yes (Other)
  Sender: FDA-Public Use
  Company Number: 200515752US

PATIENT
  Sex: Female

DRUGS (2)
  1. KETEK [Suspect]
     Dosage: DOSE: UNK
     Dates: start: 20050511
  2. TOPIRAMATE [Concomitant]

REACTIONS (4)
  - HOT FLUSH [None]
  - PHOTOPSIA [None]
  - THINKING ABNORMAL [None]
  - VISUAL DISTURBANCE [None]
